FAERS Safety Report 9256703 (Version 4)
Quarter: 2014Q2

REPORT INFORMATION
  Report Type: Spontaneous
  Country: US (occurrence: US)
  Receive Date: 20130426
  Receipt Date: 20140522
  Transmission Date: 20141212
  Serious: Yes (Other)
  Sender: FDA-Public Use
  Company Number: US-ASTRAZENECA-2013SE27272

PATIENT
  Age: 70 Year
  Sex: Female
  Weight: 54.4 kg

DRUGS (24)
  1. NEXIUM [Suspect]
     Indication: DYSPEPSIA
     Route: 048
     Dates: start: 2002, end: 2009
  2. NEXIUM [Suspect]
     Indication: GASTROOESOPHAGEAL REFLUX DISEASE
     Route: 048
     Dates: start: 2002, end: 2009
  3. NEXIUM [Suspect]
     Indication: DYSPEPSIA
     Route: 048
     Dates: start: 20030205
  4. NEXIUM [Suspect]
     Indication: GASTROOESOPHAGEAL REFLUX DISEASE
     Route: 048
     Dates: start: 20030205
  5. NEXIUM [Suspect]
     Indication: DYSPEPSIA
     Route: 048
     Dates: start: 20070606
  6. NEXIUM [Suspect]
     Indication: GASTROOESOPHAGEAL REFLUX DISEASE
     Route: 048
     Dates: start: 20070606
  7. OMEPRAZOLE [Suspect]
     Indication: GASTROOESOPHAGEAL REFLUX DISEASE
     Route: 048
     Dates: start: 2009
  8. OMEPRAZOLE [Suspect]
     Indication: DYSPEPSIA
     Route: 048
     Dates: start: 2009
  9. PRAVASTATIN [Concomitant]
     Indication: BLOOD CHOLESTEROL ABNORMAL
     Dates: start: 20070227
  10. PROPRANOLOL [Concomitant]
     Indication: HYPERTENSION
  11. PROPRANOLOL [Concomitant]
     Indication: HYPERTENSION
     Dates: start: 20070227
  12. PROPRANOLOL [Concomitant]
     Indication: HYPERTENSION
  13. LISINOPRIL [Concomitant]
     Indication: HYPERTENSION
     Dates: start: 20070219
  14. AMLODIPINE [Concomitant]
     Indication: HYPERTENSION
     Dates: start: 20070606
  15. CITALOPRAM [Concomitant]
     Indication: ANXIETY
     Dates: start: 20070606
  16. LEVOXYL [Concomitant]
     Indication: THYROID DISORDER
  17. CALCIUM WITH VIT D [Concomitant]
  18. BABY ASPIRIN [Concomitant]
  19. VITAMIN FISH OIL [Concomitant]
  20. ATIVAN [Concomitant]
     Indication: ANXIETY
     Dates: start: 20060720
  21. BONIVA [Concomitant]
     Dates: start: 20060710
  22. INDERAL [Concomitant]
     Dates: start: 20050715
  23. FLUOXETINE [Concomitant]
     Dates: start: 20050407
  24. EFFEXOR [Concomitant]
     Dates: start: 20040319

REACTIONS (11)
  - Thoracic vertebral fracture [Unknown]
  - Ankle fracture [Unknown]
  - Spinal compression fracture [Unknown]
  - Osteoporosis [Unknown]
  - Multiple fractures [Unknown]
  - Osteoarthritis [Unknown]
  - Bone pain [Unknown]
  - Cataract [Unknown]
  - Arthritis [Unknown]
  - Bone loss [Unknown]
  - Vitamin D deficiency [Unknown]
